FAERS Safety Report 4870637-4 (Version None)
Quarter: 2005Q4

REPORT INFORMATION
  Report Type: 
  Country: None (occurrence: None)
  Receive Date: 20051228
  Receipt Date: 20051214
  Transmission Date: 20060501
  Serious: Yes (Death, Hospitalization, Other)
  Sender: FDA-Public Use
  Company Number: US200512000097

PATIENT
  Age: 58 Year
  Sex: Female

DRUGS (1)
  1. CYMBALTA [Suspect]
     Dosage: UNK
     Route: 065

REACTIONS (5)
  - APALLIC SYNDROME [None]
  - BLOOD SODIUM DECREASED [None]
  - CONVULSION [None]
  - DRUG INTERACTION POTENTIATION [None]
  - HAEMORRHAGE [None]
